FAERS Safety Report 4897988-1 (Version None)
Quarter: 2006Q1

REPORT INFORMATION
  Report Type: 
  Country: None (occurrence: None)
  Receive Date: 20060130
  Receipt Date: 20060117
  Transmission Date: 20060701
  Serious: Yes (Hospitalization)
  Sender: FDA-Public Use
  Company Number: B0406909A

PATIENT
  Age: 13 Year
  Sex: Male

DRUGS (6)
  1. RETROVIR [Suspect]
     Indication: HIV INFECTION
     Dates: start: 19970401
  2. EPIVIR [Suspect]
     Indication: HIV INFECTION
     Dates: start: 19970401
  3. INDINAVIR SULFATE (INDINAVIR SULFATE) [Suspect]
     Indication: HIV INFECTION
     Dates: start: 19970401
  4. COTRIM [Concomitant]
  5. ETHAMBUTOL [Concomitant]
  6. CLARITHROMYCIN [Concomitant]

REACTIONS (34)
  - ABDOMINAL DISTENSION [None]
  - BIOPSY INTESTINE ABNORMAL [None]
  - BLOOD ALBUMIN DECREASED [None]
  - BODY HEIGHT BELOW NORMAL [None]
  - CLUBBING [None]
  - COUGH [None]
  - EOSINOPHILIA [None]
  - GRANULOMA [None]
  - GRANULOMATOUS LIVER DISEASE [None]
  - HEPATIC FIBROSIS [None]
  - HEPATOSPLENOMEGALY [None]
  - HYPERCALCIURIA [None]
  - HYPEROXALURIA [None]
  - IMMUNE RECONSTITUTION SYNDROME [None]
  - INTERCOSTAL RETRACTION [None]
  - IRIDOCYCLITIS [None]
  - KIDNEY FIBROSIS [None]
  - NASAL FLARING [None]
  - NEPHRITIS INTERSTITIAL [None]
  - NEPHROCALCINOSIS [None]
  - NEPHROLITHIASIS [None]
  - PAROTID GLAND ENLARGEMENT [None]
  - PITTING OEDEMA [None]
  - PLEURAL EFFUSION [None]
  - PNEUMONITIS [None]
  - RALES [None]
  - RENAL NECROSIS [None]
  - RENAL TUBULAR ACIDOSIS [None]
  - RENAL TUBULAR ATROPHY [None]
  - RESPIRATORY DISTRESS [None]
  - RESTRICTIVE PULMONARY DISEASE [None]
  - TACHYPNOEA [None]
  - VIRAL INFECTION [None]
  - WEIGHT BELOW NORMAL [None]
